FAERS Safety Report 16575120 (Version 1)
Quarter: 2019Q3

REPORT INFORMATION
  Report Type: Spontaneous
  Country: FR (occurrence: FR)
  Receive Date: 20190715
  Receipt Date: 20190715
  Transmission Date: 20191004
  Serious: Yes (Disabling)
  Sender: FDA-Public Use
  Company Number: PHHY2019FR159138

PATIENT
  Age: 59 Year
  Sex: Female
  Weight: 36 kg

DRUGS (4)
  1. ACLASTA [Suspect]
     Active Substance: ZOLEDRONIC ACID
     Indication: HYPERCALCAEMIA OF MALIGNANCY
     Dosage: 5 MG, UNK
     Route: 042
     Dates: start: 20170223, end: 20170223
  2. PAMIDRONATE [Suspect]
     Active Substance: PAMIDRONATE DISODIUM
     Indication: HYPERCALCAEMIA OF MALIGNANCY
     Dosage: 60 MG, UNK
     Route: 042
     Dates: start: 20170125, end: 20170320
  3. ZOMETA [Suspect]
     Active Substance: ZOLEDRONIC ACID
     Indication: HYPERCALCAEMIA OF MALIGNANCY
     Dosage: 4 MG, UNK
     Route: 042
     Dates: start: 20170628, end: 20180307
  4. XGEVA [Suspect]
     Active Substance: DENOSUMAB
     Indication: METASTASES TO BONE
     Dosage: 120 MG, UNK
     Route: 058
     Dates: start: 20140315, end: 20160725

REACTIONS (1)
  - Osteonecrosis of jaw [Not Recovered/Not Resolved]

NARRATIVE: CASE EVENT DATE: 201808
